FAERS Safety Report 11813374 (Version 1)
Quarter: 2015Q4

REPORT INFORMATION
  Report Type: Spontaneous
  Country: US (occurrence: None)
  Receive Date: 20151208
  Receipt Date: 20151208
  Transmission Date: 20160305
  Serious: Yes (Hospitalization)
  Sender: FDA-Public Use
  Company Number: None

PATIENT
  Age: 55 Year
  Sex: Male
  Weight: 79 kg

DRUGS (12)
  1. CIALIS [Concomitant]
     Active Substance: TADALAFIL
  2. LIPITOR [Concomitant]
     Active Substance: ATORVASTATIN CALCIUM
  3. COLCHICINE. [Concomitant]
     Active Substance: COLCHICINE
  4. HCTZ [Concomitant]
     Active Substance: HYDROCHLOROTHIAZIDE
  5. CA + VIT D [Concomitant]
  6. TENORIMIN [Concomitant]
  7. ECOTRIN [Suspect]
     Active Substance: ASPIRIN
     Indication: PERIPHERAL ARTERIAL OCCLUSIVE DISEASE
     Dosage: 243MG DAILY PO?CHRONIC
     Route: 048
  8. TRILIPIX [Concomitant]
     Active Substance: FENOFIBRIC ACID
  9. LEVAQUIN [Concomitant]
     Active Substance: LEVOFLOXACIN
  10. OMEGA 3 [Concomitant]
     Active Substance: OMEGA-3 FATTY ACIDS
  11. MUCINEX [Concomitant]
     Active Substance: GUAIFENESIN
  12. LISINOPRIL. [Concomitant]
     Active Substance: LISINOPRIL

REACTIONS (4)
  - Upper gastrointestinal haemorrhage [None]
  - Iron deficiency anaemia [None]
  - Diverticulum [None]
  - Gastric ulcer [None]

NARRATIVE: CASE EVENT DATE: 20150302
